FAERS Safety Report 14174746 (Version 2)
Quarter: 2022Q1

REPORT INFORMATION
  Report Type: Spontaneous
  Country: US (occurrence: US)
  Receive Date: 20171109
  Receipt Date: 20220127
  Transmission Date: 20220423
  Serious: Yes (Death, Other)
  Sender: FDA-Public Use
  Company Number: US-PFIZER INC-2017479493

PATIENT
  Age: 17 Year

DRUGS (2)
  1. ZOLOFT [Suspect]
     Active Substance: SERTRALINE HYDROCHLORIDE
     Dosage: UNK
  2. LUVOX [Suspect]
     Active Substance: FLUVOXAMINE MALEATE
     Dosage: UNK

REACTIONS (2)
  - Completed suicide [Fatal]
  - Homicide [Unknown]
